FAERS Safety Report 15431513 (Version 5)
Quarter: 2018Q4

REPORT INFORMATION
  Report Type: Spontaneous
  Country: US (occurrence: US)
  Receive Date: 20180926
  Receipt Date: 20181115
  Transmission Date: 20190204
  Serious: No
  Sender: FDA-Public Use
  Company Number: US-PFIZER INC-2018388765

PATIENT
  Age: 66 Year
  Sex: Female
  Weight: 113 kg

DRUGS (8)
  1. METHOTREXATE. [Concomitant]
     Active Substance: METHOTREXATE
     Dosage: 7 MG, UNK(TAKING ONE AWAY EVERY TWO WEEKS TABLET)
  2. ASPIRIN (E.C.) [Concomitant]
     Active Substance: ASPIRIN
     Indication: CARDIAC DISORDER
     Dosage: DAILY
  3. XELJANZ XR [Suspect]
     Active Substance: TOFACITINIB CITRATE
     Indication: PSORIATIC ARTHROPATHY
     Dosage: 11 MG, 1X/DAY
     Route: 048
     Dates: start: 20180915, end: 20181015
  4. METHOTREXATE. [Concomitant]
     Active Substance: METHOTREXATE
     Indication: PSORIATIC ARTHROPATHY
     Dosage: 10 MG, UNK(TAKING ONE AWAY EVERY TWO WEEKS TABLET)
  5. SULFASALAZINE. [Concomitant]
     Active Substance: SULFASALAZINE
     Indication: PSORIATIC ARTHROPATHY
     Dosage: 1500 MG, 2X/DAY
  6. METFORMIN [Concomitant]
     Active Substance: METFORMIN HYDROCHLORIDE
     Indication: DIABETES MELLITUS
     Dosage: 2000 MG, 2X/DAY (ONE IN MORNING AND ONE AT NIGHT)
  7. NORCO [Concomitant]
     Active Substance: ACETAMINOPHEN\HYDROCODONE BITARTRATE
     Indication: PAIN
     Dosage: AS NEEDED (1000 EVERY 6 HOURS AS NEEDED)
  8. ASPIRIN (E.C.) [Concomitant]
     Active Substance: ASPIRIN
     Dosage: 81 MG, ALTERNATE DAY

REACTIONS (7)
  - Fibromyalgia [Unknown]
  - Disease recurrence [Unknown]
  - Muscle spasms [Unknown]
  - Fatigue [Unknown]
  - Somnolence [Unknown]
  - Dry mouth [Unknown]
  - Limb discomfort [Unknown]
